FAERS Safety Report 20580826 (Version 2)
Quarter: 2022Q2

REPORT INFORMATION
  Report Type: Spontaneous
  Country: GB (occurrence: GB)
  Receive Date: 20220311
  Receipt Date: 20220516
  Transmission Date: 20220721
  Serious: Yes (Other)
  Sender: FDA-Public Use
  Company Number: GB-GLAXOSMITHKLINE-GB2020EME000768

PATIENT

DRUGS (3)
  1. ALBUTEROL [Suspect]
     Active Substance: ALBUTEROL
     Indication: Product used for unknown indication
     Dosage: UNK
     Route: 065
  2. NUCALA [Suspect]
     Active Substance: MEPOLIZUMAB
     Indication: Asthma
     Dosage: 100 MILLIGRAM, EVERY 4 WEEKS
     Route: 058
     Dates: start: 20190112
  3. PREDNISOLONE [Suspect]
     Active Substance: PREDNISOLONE
     Indication: Nasal congestion
     Dosage: 25 MILLIGRAM, UNK
     Route: 065

REACTIONS (25)
  - Meniere^s disease [Unknown]
  - Abdominal pain [Unknown]
  - Diarrhoea [Unknown]
  - Hot flush [Unknown]
  - Nausea [Recovered/Resolved]
  - Dizziness [Recovering/Resolving]
  - Productive cough [Not Recovered/Not Resolved]
  - Migraine [Unknown]
  - Vertigo [Unknown]
  - Fatigue [Unknown]
  - Pain in extremity [Unknown]
  - Back pain [Unknown]
  - Seasonal allergy [Unknown]
  - Dyspnoea exertional [Not Recovered/Not Resolved]
  - Wheezing [Not Recovered/Not Resolved]
  - Sputum abnormal [Unknown]
  - Cough [Not Recovered/Not Resolved]
  - Nasal congestion [Not Recovered/Not Resolved]
  - Illness [Recovering/Resolving]
  - Sneezing [Unknown]
  - Balance disorder [Unknown]
  - Chest discomfort [Unknown]
  - Drug ineffective [Unknown]
  - Peak expiratory flow rate decreased [Unknown]
  - Sleep disorder due to a general medical condition [Unknown]
